FAERS Safety Report 7475742-4 (Version None)
Quarter: 2011Q2

REPORT INFORMATION
  Report Type: 
  Country: None (occurrence: None)
  Receive Date: 20110504
  Receipt Date: 20110420
  Transmission Date: 20111010
  Serious: Yes (Hospitalization, Other)
  Sender: FDA-Public Use
  Company Number: JP-2011-10668

PATIENT
  Age: 61 Year
  Sex: Male

DRUGS (7)
  1. ARTIST (CARVEDILOL) [Concomitant]
  2. PIMOBENDAN (PIMOBENDAN) [Concomitant]
  3. LASIX [Concomitant]
  4. PREDOPA (DOPAMINE HYDROCHLORIDE) [Concomitant]
  5. ALDACTONE [Concomitant]
  6. SAMSCA [Suspect]
     Indication: CARDIAC FAILURE CHRONIC
     Dosage: 7.5 MG MILLIGRAM(S), QD, ORAL
     Route: 048
     Dates: start: 20110317, end: 20110401
  7. DOBUTREX [Concomitant]

REACTIONS (1)
  - RASH [None]
